FAERS Safety Report 11977117 (Version 2)
Quarter: 2016Q1

REPORT INFORMATION
  Report Type: Spontaneous
  Country: JP (occurrence: JP)
  Receive Date: 20160129
  Receipt Date: 20160224
  Transmission Date: 20160526
  Serious: Yes (Other)
  Sender: FDA-Public Use
  Company Number: JP-PFIZER INC-2016043274

PATIENT
  Age: 8 Decade
  Sex: Female

DRUGS (1)
  1. AMLODIN [Suspect]
     Active Substance: AMLODIPINE BESYLATE
     Dosage: UNK
     Route: 048

REACTIONS (1)
  - Stevens-Johnson syndrome [Unknown]
